FAERS Safety Report 4650551-X (Version None)
Quarter: 2005Q2

REPORT INFORMATION
  Report Type: 
  Country: None (occurrence: None)
  Receive Date: 20050429
  Receipt Date: 20050414
  Transmission Date: 20051028
  Serious: Yes (Other)
  Sender: FDA-Public Use
  Company Number: 10883

PATIENT
  Age: 15 Year
  Sex: Female

DRUGS (8)
  1. CISPLATIN [Suspect]
     Indication: RENAL CELL CARCINOMA STAGE UNSPECIFIED
     Dosage: 70 MG/M2 OTH IT
     Route: 037
  2. PACLITAXEL [Suspect]
     Indication: RENAL CELL CARCINOMA STAGE UNSPECIFIED
     Dosage: 80 MG/M2 OTH IV
     Route: 042
  3. GEMCITABINE [Suspect]
     Indication: RENAL CELL CARCINOMA STAGE UNSPECIFIED
     Dosage: 1000 MG/M2 OTH IV
     Route: 042
  4. PEGFILGRASTIM [Suspect]
     Indication: RENAL CELL CARCINOMA STAGE UNSPECIFIED
     Dosage: 6 MG OTH SC
     Route: 058
  5. CARBOPLATIN [Concomitant]
  6. METHOTREXATE [Concomitant]
  7. VINBLASTINE SULFATE [Concomitant]
  8. DOXORUBICIN [Concomitant]

REACTIONS (11)
  - ANAEMIA [None]
  - DEAFNESS [None]
  - DISEASE PROGRESSION [None]
  - HEPATIC NEOPLASM MALIGNANT RECURRENT [None]
  - HYPOKALAEMIA [None]
  - HYPOMAGNESAEMIA [None]
  - HYPOPHOSPHATAEMIA [None]
  - NAUSEA [None]
  - NEPHROPATHY TOXIC [None]
  - NEUTROPENIA [None]
  - THROMBOCYTOPENIA [None]
